FAERS Safety Report 5526742-2 (Version None)
Quarter: 2007Q4

REPORT INFORMATION
  Report Type: 
  Country: None (occurrence: None)
  Receive Date: 20071120
  Receipt Date: 20070625
  Transmission Date: 20080405
  Serious: Yes (Other)
  Sender: FDA-Public Use
  Company Number: 2007052520

PATIENT
  Age: 63 Year
  Sex: Female
  Weight: 56.81 kg

DRUGS (7)
  1. TIKOSYN [Suspect]
     Indication: VENTRICULAR FIBRILLATION
     Dosage: 250 MCG (125 MCG,BID),ORAL
     Route: 048
     Dates: start: 20060501
  2. COREG [Concomitant]
  3. ASPIRIN [Concomitant]
  4. MULTI-VITAMINS [Concomitant]
  5. COQ-10 ST (TOCOPHEROL, UBIDECARENONE) [Concomitant]
  6. XANAX [Concomitant]
  7. BUMEX [Concomitant]

REACTIONS (6)
  - CHEST PAIN [None]
  - FEELING ABNORMAL [None]
  - HEADACHE [None]
  - MUSCULOSKELETAL STIFFNESS [None]
  - NAUSEA [None]
  - SYNCOPE [None]
